FAERS Safety Report 5161966-8 (Version None)
Quarter: 2006Q4

REPORT INFORMATION
  Report Type: 
  Country: None (occurrence: None)
  Receive Date: 20061121
  Receipt Date: 20061003
  Transmission Date: 20070319
  Serious: Yes (Death)
  Sender: FDA-Public Use
  Company Number: A03200602836

PATIENT
  Age: 71 Year
  Sex: Female
  Weight: 113.38 kg

DRUGS (9)
  1. PLAVIX [Suspect]
     Dosage: ORAL
     Route: 048
  2. WARFARIN SODIUM [Concomitant]
  3. ALLOPURINOL [Concomitant]
  4. ISOSORIBE MONONTRATE [Concomitant]
  5. DIGOXIN [Concomitant]
  6. EZETIMIBE [Concomitant]
  7. CARVEDILOL [Concomitant]
  8. HUMULIN R [Concomitant]
  9. FUROSEMIDE [Concomitant]

REACTIONS (1)
  - MYOCARDIAL INFARCTION [None]
